FAERS Safety Report 8825946 (Version 1)
Quarter: 2012Q4

REPORT INFORMATION
  Report Type: 
  Country: FR (occurrence: FR)
  Receive Date: 20121005
  Receipt Date: 20121005
  Transmission Date: 20130627
  Serious: Yes (Other)
  Sender: FDA-Public Use
  Company Number: FR-VERTEX PHARMACEUTICAL INC.-2012-022452

PATIENT
  Age: 58 Year
  Sex: Male

DRUGS (3)
  1. INCIVO [Suspect]
     Indication: HEPATITIS C
     Dosage: Dosage Form: Tablet
     Route: 048
  2. PEGINTERFERON ALFA-2A [Concomitant]
  3. RIBAVIRIN [Concomitant]

REACTIONS (1)
  - Vascular purpura [Recovered/Resolved]
